FAERS Safety Report 13174612 (Version 1)
Quarter: 2017Q1

REPORT INFORMATION
  Report Type: Spontaneous
  Country: US (occurrence: US)
  Receive Date: 20170201
  Receipt Date: 20170201
  Transmission Date: 20170428
  Serious: No
  Sender: FDA-Public Use
  Company Number: US-ABBVIE-16K-163-1572562-00

PATIENT
  Age: 66 Year
  Sex: Female
  Weight: 71.28 kg

DRUGS (9)
  1. LEFLUNOMIDE. [Suspect]
     Active Substance: LEFLUNOMIDE
     Indication: PAIN
     Route: 048
  2. LISINOPRIL. [Suspect]
     Active Substance: LISINOPRIL
     Indication: PRODUCT USED FOR UNKNOWN INDICATION
     Route: 048
     Dates: start: 2014
  3. XELJANZ [Suspect]
     Active Substance: TOFACITINIB CITRATE
     Indication: RHEUMATOID ARTHRITIS
     Route: 048
  4. METHOTREXATE. [Concomitant]
     Active Substance: METHOTREXATE
     Indication: RHEUMATOID ARTHRITIS
     Dosage: FIVE TAB
     Route: 048
  5. HUMIRA [Suspect]
     Active Substance: ADALIMUMAB
     Indication: ARTHRITIS
     Route: 058
  6. LISIONPRIL HYDROCHLOROTHIAZIDE [Concomitant]
     Indication: BLOOD PRESSURE MEASUREMENT
     Dosage: 12.5MG/10MG
     Route: 048
  7. SIMVASTATIN. [Concomitant]
     Active Substance: SIMVASTATIN
     Indication: BLOOD CHOLESTEROL INCREASED
     Route: 048
     Dates: start: 2006
  8. HYDROCHLORZIDE [Concomitant]
     Active Substance: HYDROCHLOROTHIAZIDE
     Indication: HYPERTENSION
     Route: 048
  9. POTASSIUM [Concomitant]
     Active Substance: POTASSIUM
     Indication: BLOOD POTASSIUM DECREASED
     Dosage: 10 MEQ ER
     Route: 048
     Dates: start: 2015

REACTIONS (10)
  - Anorectal discomfort [Recovered/Resolved]
  - Arthralgia [Not Recovered/Not Resolved]
  - Anal infection [Unknown]
  - Bone pain [Not Recovered/Not Resolved]
  - Rash [Recovered/Resolved]
  - Adverse drug reaction [Unknown]
  - Osteopenia [Unknown]
  - Asthenia [Unknown]
  - Protein total abnormal [Unknown]
  - Muscle twitching [Recovered/Resolved]

NARRATIVE: CASE EVENT DATE: 201512
